FAERS Safety Report 24537519 (Version 2)
Quarter: 2024Q4

REPORT INFORMATION
  Report Type: Report from Study
  Country: JP (occurrence: JP)
  Receive Date: 20241023
  Receipt Date: 20241029
  Transmission Date: 20250115
  Serious: Yes (Hospitalization)
  Sender: ABBVIE
  Company Number: JP-ABBVIE-5394651

PATIENT
  Age: 56 Year
  Sex: Male
  Weight: 69 kg

DRUGS (10)
  1. FOSCARBIDOPA\FOSLEVODOPA [Suspect]
     Active Substance: FOSCARBIDOPA\FOSLEVODOPA
     Indication: Parkinson^s disease
     Dosage: FROM 9 AM: 0.38 ML/HR, FROM 22 PM: 0.28 ML/HR,?LAST ADMIN DATE: 2023
     Route: 058
     Dates: start: 20230828
  2. FOSCARBIDOPA\FOSLEVODOPA [Suspect]
     Active Substance: FOSCARBIDOPA\FOSLEVODOPA
     Dosage: STANDARD: 0.38 ML/HR, LARGE: 0.40 ML/HR, SMALL: 0.35 ML/HR
     Route: 058
     Dates: start: 20230904
  3. FOSCARBIDOPA\FOSLEVODOPA [Suspect]
     Active Substance: FOSCARBIDOPA\FOSLEVODOPA
     Dosage: 0.33 ML/HR
     Route: 058
     Dates: start: 20230901, end: 202309
  4. RASAGILINE MESYLATE [Concomitant]
     Active Substance: RASAGILINE MESYLATE
     Indication: Parkinson^s disease
     Dosage: 2 TABLET, FORM STRENGTH: 0.5, FORM STRENGTH UNITS: UNKNOWN
     Route: 048
  5. RASAGILINE MESYLATE [Concomitant]
     Active Substance: RASAGILINE MESYLATE
     Indication: Parkinson^s disease
     Dosage: 1 TABLET, FORM STRENGTH: 0.5, FORM STRENGTH UNITS: UNKNOWN
     Route: 048
  6. CARBIDOPA, LEVODOPA AND ENTACAPONE [Concomitant]
     Active Substance: CARBIDOPA\ENTACAPONE\LEVODOPA
     Indication: Parkinson^s disease
     Dosage: TIME INTERVAL: 0.14285714 DAYS: 7 TABLET, FORM STRENGTH: 100, FORM STRENGTH UNITS: UNKNOWN
     Route: 048
  7. OPICAPONE [Concomitant]
     Active Substance: OPICAPONE
     Indication: Product used for unknown indication
  8. TRIHEXYPHENIDYL HYDROCHLORIDE [Concomitant]
     Active Substance: TRIHEXYPHENIDYL HYDROCHLORIDE
     Indication: Parkinson^s disease
     Dosage: 2 TABLETS, FORM STRENGTH: 2 MIILIGRAM
     Route: 048
  9. ROPINIROLE HYDROCHLORIDE [Concomitant]
     Active Substance: ROPINIROLE HYDROCHLORIDE
     Indication: Parkinson^s disease
     Dosage: 2 TABLET, FORM STRENGTH: 8, FORM STRENGTH UNITS: UNKNOWN
     Route: 048
  10. ROPINIROLE HYDROCHLORIDE [Concomitant]
     Active Substance: ROPINIROLE HYDROCHLORIDE
     Indication: Parkinson^s disease
     Dosage: 1 TABLET, FORM STRENGTH: 8, FORM STRENGTH UNITS: UNKNOWN
     Route: 048

REACTIONS (16)
  - Heat illness [Unknown]
  - Infusion site pain [Recovered/Resolved]
  - Mobility decreased [Unknown]
  - Infusion site haemorrhage [Recovered/Resolved]
  - Anxiety [Unknown]
  - Infusion site bruising [Not Recovered/Not Resolved]
  - Infusion site erythema [Recovered/Resolved]
  - Infusion site pain [Not Recovered/Not Resolved]
  - Infusion site haematoma [Unknown]
  - Rash [Unknown]
  - On and off phenomenon [Unknown]
  - Infusion site induration [Recovered/Resolved]
  - Dyskinesia [Unknown]
  - Infusion site erythema [Recovered/Resolved]
  - Infusion site haemorrhage [Unknown]
  - Infusion site erythema [Unknown]

NARRATIVE: CASE EVENT DATE: 20230828
